FAERS Safety Report 17458911 (Version 1)
Quarter: 2020Q1

REPORT INFORMATION
  Report Type: Report from Study
  Country: DE (occurrence: DE)
  Receive Date: 20200225
  Receipt Date: 20200225
  Transmission Date: 20200409
  Serious: Yes (Hospitalization)
  Sender: FDA-Public Use
  Company Number: DE-PURDUE PHARMA-GBR-2020-0075214

PATIENT
  Age: 67 Year
  Sex: Female
  Weight: 90 kg

DRUGS (36)
  1. REMODULIN [Suspect]
     Active Substance: TREPROSTINIL
     Dosage: 10.8 MCG, DAILY (10.8 MCG, QD)
     Route: 058
     Dates: start: 20190801, end: 20190827
  2. MORPHINE HYDROCHLORIDE [Concomitant]
     Active Substance: MORPHINE HYDROCHLORIDE
     Dosage: UNK
     Route: 048
     Dates: start: 2005, end: 20190724
  3. PARACETAMOL [Concomitant]
     Active Substance: ACETAMINOPHEN
     Indication: PAIN
     Dosage: UNK
     Route: 048
     Dates: start: 20190729, end: 20190729
  4. REMODULIN [Suspect]
     Active Substance: TREPROSTINIL
     Dosage: 18.6 MCG, DAILY (18.6 MCG, QD)
     Route: 058
     Dates: start: 20191007, end: 20191014
  5. REMODULIN [Suspect]
     Active Substance: TREPROSTINIL
     Dosage: 13.7 MCG, DAILY (13.7 MCG, QD)
     Route: 058
     Dates: start: 20190902, end: 20190912
  6. OXYGESIC [Concomitant]
     Active Substance: OXYCODONE
     Indication: PAIN
     Dosage: UNK
     Route: 048
     Dates: start: 20190728, end: 20190729
  7. LAXANS                             /00064401/ [Concomitant]
     Indication: CONSTIPATION
     Dosage: UNK
     Route: 048
     Dates: start: 20190706, end: 20190802
  8. RAMIPRIL. [Concomitant]
     Active Substance: RAMIPRIL
     Indication: HYPERTENSION
     Dosage: UNK
     Route: 048
     Dates: start: 2000
  9. ENOXAPARIN SODIUM. [Concomitant]
     Active Substance: ENOXAPARIN SODIUM
     Indication: THROMBOSIS PROPHYLAXIS
     Dosage: UNK
     Route: 058
     Dates: start: 20190704, end: 20190805
  10. MST (MORPHINE SULFATE) [Suspect]
     Active Substance: MORPHINE SULFATE
     Indication: INJECTION SITE REACTION
     Dosage: UNK
     Route: 048
     Dates: start: 2005, end: 20190724
  11. REMODULIN [Suspect]
     Active Substance: TREPROSTINIL
     Dosage: 14.7 MCG, DAILY (14.7 MCG, QD)
     Route: 058
     Dates: start: 20190909, end: 20190916
  12. MORPHINE HYDROCHLORIDE [Concomitant]
     Active Substance: MORPHINE HYDROCHLORIDE
     Indication: PAIN
     Dosage: UNK
     Route: 048
     Dates: start: 20190726
  13. DOGMATIL [Concomitant]
     Active Substance: SULPIRIDE
     Indication: PAIN
     Dosage: UNK
     Route: 048
     Dates: start: 2005
  14. MOVICOL [Concomitant]
     Active Substance: POLYETHYLENE GLYCOL 3350\POTASSIUM CHLORIDE\SODIUM BICARBONATE\SODIUM CHLORIDE
     Indication: CONSTIPATION
     Dosage: UNK
     Route: 048
     Dates: start: 2010
  15. NOVALGIN                           /00169801/ [Concomitant]
     Active Substance: ACETAMINOPHEN\CAFFEINE\PROPYPHENAZONE
     Indication: PAIN
     Dosage: UNK
     Route: 048
     Dates: start: 2009
  16. PANTOPRAZOL [Concomitant]
     Active Substance: PANTOPRAZOLE SODIUM
     Indication: PROPHYLAXIS
     Dosage: UNK
     Route: 048
     Dates: start: 2009
  17. REMODULIN [Suspect]
     Active Substance: TREPROSTINIL
     Dosage: 17.6 MCG, DAILY (17.6 MCG, QD)
     Route: 058
     Dates: start: 20190930, end: 20191007
  18. OXYGEN. [Concomitant]
     Active Substance: OXYGEN
     Indication: RESPIRATORY FAILURE
     Dosage: UNK
     Route: 055
     Dates: start: 2017
  19. ACETYLSALICYLIC ACID [Concomitant]
     Active Substance: ASPIRIN
     Indication: THROMBOSIS PROPHYLAXIS
     Dosage: UNK
     Route: 048
     Dates: start: 2015
  20. REMODULIN [Suspect]
     Active Substance: TREPROSTINIL
     Indication: PULMONARY ARTERIAL HYPERTENSION
     Dosage: 19.6 MCG, DAILY (19.6 MCG, QD)
     Route: 058
     Dates: start: 20191014
  21. REMODULIN [Suspect]
     Active Substance: TREPROSTINIL
     Dosage: 16.7 MCG, DAILY (16.7 MCG, QD)
     Route: 058
     Dates: start: 20190923, end: 20190930
  22. REMODULIN [Suspect]
     Active Substance: TREPROSTINIL
     Dosage: 15.7 MCG, DAILY (15.7 MCG, QD)
     Route: 058
     Dates: start: 20190916, end: 20190923
  23. SEVREDOL [Concomitant]
     Active Substance: MORPHINE
     Indication: PAIN
     Dosage: UNK
     Route: 048
     Dates: start: 2011, end: 20190729
  24. ADCIRCA [Concomitant]
     Active Substance: TADALAFIL
     Indication: PULMONARY ARTERIAL HYPERTENSION
     Dosage: 20 MG, DAILY (20 MG, QD)
     Route: 048
     Dates: start: 20190727
  25. ADCIRCA [Concomitant]
     Active Substance: TADALAFIL
     Dosage: 20 MG, DAILY (20 MG, QD)
     Route: 048
     Dates: start: 20190706, end: 20190712
  26. ALDACTONE [Concomitant]
     Active Substance: SPIRONOLACTONE
     Indication: OEDEMA
     Dosage: UNK
     Route: 048
     Dates: start: 20190705
  27. PREGABALIN. [Concomitant]
     Active Substance: PREGABALIN
     Indication: PAIN
     Dosage: UNK
     Route: 048
     Dates: start: 2009
  28. MST (MORPHINE SULFATE) [Suspect]
     Active Substance: MORPHINE SULFATE
     Indication: PAIN
     Dosage: UNK
     Route: 048
  29. REMODULIN [Suspect]
     Active Substance: TREPROSTINIL
     Dosage: 12.7 MCG, DAILY (12.7 MCG, QD)
     Route: 058
     Dates: start: 20190827, end: 20190902
  30. ADCIRCA [Concomitant]
     Active Substance: TADALAFIL
     Dosage: 40 MG, DAILY (40 MG, QD)
     Route: 048
     Dates: start: 20190712, end: 20190725
  31. REMODULIN [Suspect]
     Active Substance: TREPROSTINIL
     Dosage: 9.8 MCG, DAILY (9.8 MCG, QD)
     Route: 058
     Dates: start: 20190724, end: 20190801
  32. REMODULIN [Suspect]
     Active Substance: TREPROSTINIL
     Dosage: 14.7 MCG, DAILY (14.7 MCG, QD)
     Route: 058
     Dates: start: 20190723, end: 20190724
  33. MICTONORM [Concomitant]
     Active Substance: PROPIVERINE HYDROCHLORIDE
     Indication: BLADDER IRRITATION
     Dosage: UNK
     Route: 048
     Dates: start: 2009
  34. SIMVAHEXAL [Concomitant]
     Active Substance: SIMVASTATIN
     Indication: PROPHYLAXIS
     Dosage: UNK
     Route: 048
     Dates: start: 2015
  35. MAGNESIUM [Concomitant]
     Active Substance: MAGNESIUM
     Indication: MUSCLE SPASMS
     Dosage: UNK
     Route: 048
     Dates: start: 20190707, end: 20190718
  36. ESOMEPRAZOLE. [Concomitant]
     Active Substance: ESOMEPRAZOLE MAGNESIUM
     Indication: GASTRITIS PROPHYLAXIS
     Dosage: UNK
     Route: 048
     Dates: start: 20190724, end: 20190724

REACTIONS (16)
  - Dyspnoea [Recovered/Resolved]
  - Weight decreased [Unknown]
  - Pain [Unknown]
  - Hypokalaemia [Unknown]
  - Acute kidney injury [Recovering/Resolving]
  - Renal impairment [Recovering/Resolving]
  - Medical device implantation [Recovered/Resolved]
  - Oedema [Unknown]
  - Hypotension [Unknown]
  - Dependence on oxygen therapy [Recovered/Resolved]
  - Injection site reaction [Unknown]
  - Toxicity to various agents [Recovered/Resolved]
  - Condition aggravated [Recovered/Resolved]
  - Pulmonary arterial hypertension [Recovered/Resolved]
  - PO2 decreased [Not Recovered/Not Resolved]
  - Disease progression [Recovered/Resolved]

NARRATIVE: CASE EVENT DATE: 20190724
